FAERS Safety Report 18464863 (Version 2)
Quarter: 2020Q4

REPORT INFORMATION
  Report Type: Report from Study
  Country: NL (occurrence: NL)
  Receive Date: 20201105
  Receipt Date: 20201209
  Transmission Date: 20210114
  Serious: Yes (Death, Other)
  Sender: FDA-Public Use
  Company Number: NL-AMGEN-NLDSL2020175290

PATIENT
  Age: 72 Year
  Sex: Male

DRUGS (2)
  1. XGEVA [Suspect]
     Active Substance: DENOSUMAB
     Indication: PROPHYLAXIS
     Dosage: 120 MILLIGRAM IN 1.70 ML, Q4WK
     Route: 058
  2. CALCI CHEW D3 [Suspect]
     Active Substance: CALCIUM CARBONATE\CHOLECALCIFEROL
     Indication: PRODUCT USED FOR UNKNOWN INDICATION
     Dosage: 500 MILLIGRAM/400 IE (90ST), QD
     Route: 048

REACTIONS (3)
  - Death [Fatal]
  - Prostate cancer metastatic [Unknown]
  - Delirium [Unknown]

NARRATIVE: CASE EVENT DATE: 20201027
